FAERS Safety Report 20840030 (Version 1)
Quarter: 2022Q2

REPORT INFORMATION
  Report Type: Spontaneous
  Country: US (occurrence: US)
  Receive Date: 20220517
  Receipt Date: 20220517
  Transmission Date: 20220721
  Serious: No
  Sender: FDA-Public Use
  Company Number: US-BRISTOL-MYERS SQUIBB COMPANY-2022-024277

PATIENT
  Age: 79 Year
  Sex: Female

DRUGS (1)
  1. ELIQUIS [Suspect]
     Active Substance: APIXABAN
     Indication: Tachycardia
     Dosage: DOSE : UNAVAILABLE;     FREQ : TWICE A DAY
     Route: 048

REACTIONS (3)
  - Musculoskeletal stiffness [Unknown]
  - Paraesthesia [Unknown]
  - Intentional product use issue [Unknown]
